FAERS Safety Report 8363764-0 (Version None)
Quarter: 2012Q1

REPORT INFORMATION
  Report Type: 
  Country: None (occurrence: None)
  Receive Date: 20120323
  Receipt Date: 20111122
  Transmission Date: 20120608
  Serious: Yes (Other)
  Sender: FDA-Public Use
  Company Number: 163-21880-11113219

PATIENT
  Age: 62 Year
  Sex: Male

DRUGS (8)
  1. REVLIMID [Suspect]
     Indication: MULTIPLE MYELOMA
     Dosage: 5 MG, 1 IN 2 D, PO, 25 MG, 1 IN 1 D, PO
     Route: 048
     Dates: start: 20080711
  2. REVLIMID [Suspect]
     Indication: MULTIPLE MYELOMA
     Dosage: 5 MG, 1 IN 2 D, PO, 25 MG, 1 IN 1 D, PO
     Route: 048
     Dates: start: 20110913
  3. CYMBALTA [Concomitant]
  4. ASPIRIN [Concomitant]
  5. OXYCONTIN [Concomitant]
  6. DEX (DEXTROMETHORPHAN HYDROBROMIDE) [Concomitant]
  7. GABAPENTIN [Concomitant]
  8. HYDROCHLOROTHIAZIDE [Concomitant]

REACTIONS (2)
  - WHITE BLOOD CELL COUNT DECREASED [None]
  - PLATELET COUNT DECREASED [None]
